FAERS Safety Report 4471432-0 (Version None)
Quarter: 2004Q4

REPORT INFORMATION
  Report Type: 
  Country: None (occurrence: None)
  Receive Date: 20041012
  Receipt Date: 20040511
  Transmission Date: 20050328
  Serious: Yes (Hospitalization)
  Sender: FDA-Public Use
  Company Number: 200411924FR

PATIENT
  Age: 57 Year
  Sex: Female

DRUGS (4)
  1. ARAVA [Suspect]
     Indication: RHEUMATOID ARTHRITIS
     Route: 048
     Dates: start: 20031020, end: 20031127
  2. SOLUPRED [Concomitant]
  3. MOPRAL [Concomitant]
     Route: 048
     Dates: start: 20030923
  4. PROZAC [Concomitant]
     Route: 048
     Dates: start: 20030920

REACTIONS (9)
  - ABDOMINAL PAIN [None]
  - ALANINE AMINOTRANSFERASE INCREASED [None]
  - ASPARTATE AMINOTRANSFERASE INCREASED [None]
  - ASTHENIA [None]
  - GAMMA-GLUTAMYLTRANSFERASE INCREASED [None]
  - HEPATIC TRAUMA [None]
  - HYPERBILIRUBINAEMIA [None]
  - NAUSEA [None]
  - NEUTROPENIA [None]
